FAERS Safety Report 5769154-9 (Version None)
Quarter: 2008Q2

REPORT INFORMATION
  Report Type: 
  Country: None (occurrence: None)
  Receive Date: 20080610
  Receipt Date: 20080529
  Transmission Date: 20081010
  Serious: Yes (Hospitalization)
  Sender: FDA-Public Use
  Company Number: 001160

PATIENT
  Age: 62 Year
  Sex: Female

DRUGS (6)
  1. BUSULFEX [Suspect]
     Indication: STEM CELL TRANSPLANT
     Dosage: 28 ML, INTRAVENOUS
     Route: 042
     Dates: start: 20070202, end: 20070203
  2. FLUDARABINE PHOSPHATE [Concomitant]
  3. VALPROATE SODIUM [Concomitant]
  4. LENOGRASTIM (LENOGRASTIM) [Concomitant]
  5. METHOTREXATE [Concomitant]
  6. CYCLOSPORINE [Concomitant]

REACTIONS (7)
  - ANOREXIA [None]
  - BONE MARROW TRANSPLANT [None]
  - CYTOMEGALOVIRUS INFECTION [None]
  - ENTEROCOLITIS VIRAL [None]
  - GRAFT VERSUS HOST DISEASE [None]
  - PNEUMONIA [None]
  - STOMATITIS [None]
